FAERS Safety Report 5363166-5 (Version None)
Quarter: 2007Q2

REPORT INFORMATION
  Report Type: 
  Country: None (occurrence: None)
  Receive Date: 20070620
  Receipt Date: 20070613
  Transmission Date: 20071010
  Serious: Yes (Other)
  Sender: FDA-Public Use
  Company Number: PHEH2007US04780

PATIENT
  Age: 45 Year
  Sex: Female
  Weight: 73.922 kg

DRUGS (14)
  1. ZELNORM [Suspect]
     Indication: IRRITABLE BOWEL SYNDROME
     Dosage: 6 MG, QD
     Route: 048
     Dates: start: 20060809, end: 20070422
  2. TRAMADOL HCL [Concomitant]
  3. PIROXICAM [Concomitant]
  4. PROCHLORPERAZINE [Concomitant]
  5. AMOXICILLIN [Concomitant]
  6. VICODIN [Concomitant]
  7. PRILOSEC [Concomitant]
  8. FLUOXETINE [Concomitant]
  9. VITAMIN B-12 [Concomitant]
     Dosage: UNK, WEEKLY
     Dates: start: 20070301
  10. VICODIN ES [Concomitant]
     Dosage: UNK, BID
     Route: 048
  11. VITAMIN B-12 [Concomitant]
  12. PROZAC [Concomitant]
     Dosage: 20 MG, QD
     Route: 048
  13. FELDENE [Concomitant]
     Dosage: 20 MG, QD
     Route: 048
  14. FOLIC ACID [Concomitant]
     Dosage: 1 MG, QD
     Route: 048

REACTIONS (11)
  - ABDOMINAL DISTENSION [None]
  - ABDOMINAL PAIN [None]
  - DIARRHOEA [None]
  - HAEMATOCHEZIA [None]
  - HYPERTENSION [None]
  - JOINT SWELLING [None]
  - MENSTRUATION IRREGULAR [None]
  - MUSCULOSKELETAL PAIN [None]
  - POLYMENORRHOEA [None]
  - SOMNOLENCE [None]
  - VOMITING [None]
